FAERS Safety Report 14428991 (Version 7)
Quarter: 2018Q2

REPORT INFORMATION
  Report Type: Report from Study
  Country: JP (occurrence: JP)
  Receive Date: 20180123
  Receipt Date: 20180605
  Transmission Date: 20180711
  Serious: Yes (Hospitalization)
  Sender: FDA-Public Use
  Company Number: PHJP2018JP000675

PATIENT
  Age: 74 Year
  Sex: Male
  Weight: 70.5 kg

DRUGS (13)
  1. ILARIS [Suspect]
     Active Substance: CANAKINUMAB
     Indication: CARDIOVASCULAR EVENT PROPHYLAXIS
     Dosage: 150 MG, QUARTERLY
     Route: 058
  2. ALDACTONE-A [Concomitant]
     Active Substance: SPIRONOLACTONE
     Indication: PROPHYLAXIS
     Dosage: 25 MG, QD
     Route: 048
  3. ACZ885 [Suspect]
     Active Substance: CANAKINUMAB
     Dosage: 1 DF, Q3MO
     Route: 058
     Dates: start: 20180214
  4. BAYASPIRIN [Concomitant]
     Active Substance: ASPIRIN
     Indication: PROPHYLAXIS
     Dosage: 100 MG, QD
     Route: 048
  5. MEXITIL [Concomitant]
     Active Substance: MEXILETINE HYDROCHLORIDE
     Indication: TACHYARRHYTHMIA
     Dosage: 100 MG, TID
     Route: 048
  6. ACZ885 [Suspect]
     Active Substance: CANAKINUMAB
     Indication: CARDIOVASCULAR EVENT PROPHYLAXIS
     Dosage: Q3MO
     Route: 058
     Dates: start: 20170118
  7. ACZ885 [Suspect]
     Active Substance: CANAKINUMAB
     Dosage: Q3MO
     Route: 058
     Dates: start: 20170517
  8. ACZ885 [Suspect]
     Active Substance: CANAKINUMAB
     Dosage: Q3MO
     Route: 058
     Dates: start: 20170823
  9. ACZ885 [Suspect]
     Active Substance: CANAKINUMAB
     Dosage: 1 DF, Q3MO
     Route: 058
     Dates: start: 20171122
  10. PANALDINE [Concomitant]
     Active Substance: TICLOPIDINE HYDROCHLORIDE
     Indication: PROPHYLAXIS
     Dosage: 100 MG, QD
     Route: 048
     Dates: start: 20100308
  11. CONIEL [Concomitant]
     Active Substance: BENIDIPINE HYDROCHLORIDE
     Indication: HYPERTENSION
     Dosage: 4 MG, BID
     Route: 048
  12. GASTER [Concomitant]
     Active Substance: FAMOTIDINE
     Indication: PROPHYLAXIS AGAINST GASTROINTESTINAL ULCER
     Dosage: 20 MG, BID
     Route: 048
  13. ZYLORIC [Concomitant]
     Active Substance: ALLOPURINOL
     Indication: HYPERURICAEMIA
     Dosage: 100 MG, QD
     Route: 048
     Dates: start: 20110826

REACTIONS (1)
  - Intervertebral discitis [Recovering/Resolving]

NARRATIVE: CASE EVENT DATE: 20171219
